FAERS Safety Report 16659133 (Version 1)
Quarter: 2019Q3

REPORT INFORMATION
  Report Type: Spontaneous
  Country: US (occurrence: US)
  Receive Date: 20190802
  Receipt Date: 20190802
  Transmission Date: 20191004
  Serious: No
  Sender: FDA-Public Use
  Company Number: US-SHIRE-US201924538

PATIENT
  Sex: Female

DRUGS (1)
  1. XIIDRA [Suspect]
     Active Substance: LIFITEGRAST
     Indication: PRODUCT USED FOR UNKNOWN INDICATION
     Route: 047

REACTIONS (12)
  - Visual acuity reduced [Unknown]
  - Ocular discomfort [Unknown]
  - Headache [Unknown]
  - Eye pruritus [Unknown]
  - Vision blurred [Unknown]
  - Lacrimation increased [Unknown]
  - Conjunctival hyperaemia [Unknown]
  - Eye discharge [Unknown]
  - Eye irritation [Unknown]
  - Dysgeusia [Unknown]
  - Sinusitis [Unknown]
  - Instillation site irritation [Unknown]
